FAERS Safety Report 17679627 (Version 1)
Quarter: 2020Q2

REPORT INFORMATION
  Report Type: Report from Study
  Country: DE (occurrence: DE)
  Receive Date: 20200417
  Receipt Date: 20200417
  Transmission Date: 20200714
  Serious: Yes (Life-Threatening, Other)
  Sender: FDA-Public Use
  Company Number: DE-SA-2020SA099124

PATIENT
  Age: 60 Year

DRUGS (10)
  1. CLEMASTIN [Concomitant]
     Active Substance: CLEMASTINE
     Indication: ANTIALLERGIC THERAPY
     Dosage: 2 MG;  GIVEN 30 MIN BEFORE THE INFUSIONS
     Route: 042
  2. COTRIMOXAZOLE [Concomitant]
     Active Substance: SULFAMETHOXAZOLE\TRIMETHOPRIM
     Indication: ANTIBIOTIC PROPHYLAXIS
     Dosage: TRIMETHOPRIM 160 MG, SULPHAMETHOXAZOLE 800 MG) TWICE DAILY 2 TIMES EACH WEEK OVER THE PERIOD OF THER
  3. PARACETAMOL [Concomitant]
     Active Substance: ACETAMINOPHEN
     Dosage: 1 G;  GIVEN 30 MIN BEFORE THE INFUSIONS
     Route: 048
  4. ACICLOVIR [Concomitant]
     Active Substance: ACYCLOVIR
     Indication: ANTIVIRAL PROPHYLAXIS
     Dosage: 400 MG, QID
     Route: 048
  5. ALEMTUZUMAB [Suspect]
     Active Substance: ALEMTUZUMAB
     Indication: CHRONIC LYMPHOCYTIC LEUKAEMIA REFRACTORY
     Dosage: 3 MG, QD (DAY 1)
     Route: 041
  6. ALEMTUZUMAB [Suspect]
     Active Substance: ALEMTUZUMAB
     Dosage: 10 MG, QD; (DAY 2)
     Route: 041
  7. ALEMTUZUMAB [Suspect]
     Active Substance: ALEMTUZUMAB
     Dosage: 30 MG, QD; (DAY 3,5,7)
     Route: 041
  8. PREDNISOLONE. [Concomitant]
     Active Substance: PREDNISOLONE
     Indication: PREMEDICATION
     Dosage: 2 MG/KG (FOR FIRST THREE INFUSIONS DAY 1,2, 3)
  9. ALEMTUZUMAB [Suspect]
     Active Substance: ALEMTUZUMAB
     Dosage: 30 MG THREE TIMES A WEEK
     Route: 041
  10. PREDNISOLONE. [Concomitant]
     Active Substance: PREDNISOLONE
     Dosage: 1 MG/KG; (FROM FOURTH INFUSION)

REACTIONS (2)
  - Leukopenia [Recovering/Resolving]
  - Haematotoxicity [Recovering/Resolving]
